FAERS Safety Report 11941978 (Version 1)
Quarter: 2016Q1

REPORT INFORMATION
  Report Type: Spontaneous
  Country: LK (occurrence: LK)
  Receive Date: 20160124
  Receipt Date: 20160124
  Transmission Date: 20160526
  Serious: Yes (Other)
  Sender: FDA-Public Use
  Company Number: LK-ROXANE LABORATORIES, INC.-2016-RO-00086RO

PATIENT
  Sex: Female

DRUGS (1)
  1. DIAZEPAM ORAL SOLUTION [Suspect]
     Active Substance: DIAZEPAM
     Indication: PRODUCT USED FOR UNKNOWN INDICATION
     Route: 065

REACTIONS (3)
  - Laceration [None]
  - Toxicity to various agents [Unknown]
  - Victim of homicide [None]
